FAERS Safety Report 8792972 (Version 1)
Quarter: 2012Q4

REPORT INFORMATION
  Report Type: 
  Country: AR (occurrence: AR)
  Receive Date: 20120918
  Receipt Date: 20120918
  Transmission Date: 20130627
  Serious: Yes (Other)
  Sender: FDA-Public Use
  Company Number: AR-ROCHE-1120616

PATIENT
  Sex: Male

DRUGS (1)
  1. LUCENTIS [Suspect]
     Indication: THROMBOSIS
     Route: 050
     Dates: start: 201111

REACTIONS (3)
  - Retinal disorder [Recovering/Resolving]
  - Influenza [Recovering/Resolving]
  - Drug ineffective [Unknown]
